FAERS Safety Report 5025284-0 (Version None)
Quarter: 2006Q2

REPORT INFORMATION
  Report Type: 
  Country: None (occurrence: None)
  Receive Date: 20060607
  Receipt Date: 20060526
  Transmission Date: 20061013
  Serious: Yes (Hospitalization, Other)
  Sender: FDA-Public Use
  Company Number: 200613611BWH

PATIENT
  Age: 54 Year
  Sex: Male
  Weight: 67.2 kg

DRUGS (8)
  1. SORAFENIB [Suspect]
     Indication: METASTATIC NEOPLASM
     Dosage: 400 MG, BID, ORAL
     Route: 048
     Dates: start: 20060513, end: 20060517
  2. SORAFENIB [Suspect]
     Indication: TRANSITIONAL CELL CARCINOMA
     Dosage: 400 MG, BID, ORAL
     Route: 048
     Dates: start: 20060513, end: 20060517
  3. MOXIFLOXACIN HCL [Suspect]
     Dosage: 400 MG, TOTAL DAILY, ORAL
     Route: 048
  4. NEURONTIN [Concomitant]
  5. FOLIC ACID [Concomitant]
  6. OXYCODONE HCL [Concomitant]
  7. PREDNISONE [Concomitant]
  8. COMBIVENT [Concomitant]

REACTIONS (2)
  - DYSPNOEA [None]
  - INFECTION [None]
